FAERS Safety Report 13783197 (Version 1)
Quarter: 2017Q3

REPORT INFORMATION
  Report Type: Spontaneous
  Country: US (occurrence: US)
  Receive Date: 20170724
  Receipt Date: 20170724
  Transmission Date: 20171127
  Serious: Yes (Other)
  Sender: FDA-Public Use
  Company Number: US-REGENERON PHARMACEUTICALS, INC.-2017-18818

PATIENT

DRUGS (3)
  1. DORZOLAMIDE HCL TIMOLOL MALEATE [Concomitant]
     Active Substance: DORZOLAMIDE HYDROCHLORIDE\TIMOLOL MALEATE
     Indication: GLAUCOMA
     Dosage: 22.3/6.8 MG/ML, ALMOST 2 YEARS -PRESENT
  2. EYLEA [Suspect]
     Active Substance: AFLIBERCEPT
     Indication: CHRONIC DISEASE
     Dosage: Q4-6 WEEKS IN BOTH EYES
     Dates: start: 2015
  3. XALATAN [Concomitant]
     Active Substance: LATANOPROST
     Indication: GLAUCOMA
     Dosage: ALMOST 2 YEARS TO PRESENT

REACTIONS (3)
  - Intraocular pressure increased [Unknown]
  - Off label use [Unknown]
  - Blindness transient [Unknown]
